FAERS Safety Report 24655035 (Version 1)
Quarter: 2024Q4

REPORT INFORMATION
  Report Type: Spontaneous
  Country: US (occurrence: US)
  Receive Date: 20241122
  Receipt Date: 20241122
  Transmission Date: 20250114
  Serious: Yes (Other)
  Sender: RUBICON RESEARCH
  Company Number: US-Rubicon research Pvt ltd-2024000068

PATIENT

DRUGS (1)
  1. CLONAZEPAM [Suspect]
     Active Substance: CLONAZEPAM
     Indication: Anxiety disorder
     Dosage: (DOSAGE WAS NOT PROVIDED)
     Route: 065

REACTIONS (8)
  - Suicidal ideation [Unknown]
  - Restlessness [Unknown]
  - Malaise [Unknown]
  - Insomnia [Unknown]
  - Palpitations [Unknown]
  - Depression [Unknown]
  - Therapeutic response changed [Unknown]
  - Product substitution issue [Unknown]
